FAERS Safety Report 10518520 (Version 1)
Quarter: 2014Q4

REPORT INFORMATION
  Report Type: Spontaneous
  Country: US (occurrence: None)
  Receive Date: 20141014
  Receipt Date: 20141014
  Transmission Date: 20150528
  Serious: Yes (Death)
  Sender: FDA-Public Use
  Company Number: None

PATIENT
  Age: 57 Year
  Sex: Male

DRUGS (1)
  1. AMBIEN [Suspect]
     Active Substance: ZOLPIDEM TARTRATE
     Indication: INSOMNIA
     Dosage: TAKE ON AT H.S.  AT BEDTIME TAKEN BY MOUTH
     Route: 048
     Dates: start: 20141006, end: 20141010

REACTIONS (2)
  - Fall [None]
  - Completed suicide [None]

NARRATIVE: CASE EVENT DATE: 20141010
